FAERS Safety Report 5055608-X (Version None)
Quarter: 2006Q3

REPORT INFORMATION
  Report Type: 
  Country: None (occurrence: None)
  Receive Date: 20060719
  Receipt Date: 20060410
  Transmission Date: 20061208
  Serious: No
  Sender: FDA-Public Use
  Company Number: US-AMGEN-KDL176109

PATIENT
  Age: 63 Year
  Sex: Female

DRUGS (4)
  1. PROCRIT [Suspect]
     Indication: RENAL FAILURE CHRONIC
     Dates: start: 20051101
  2. MEDICINALPRODUCT NOT SPECIFIED BY SENDER [Concomitant]
  3. MEDICINALPRODUCT NOT SPECIFIED BY SENDER [Concomitant]
  4. MEDICINALPRODUCT NOT SPECIFIED BY SENDER [Concomitant]

REACTIONS (1)
  - BLOOD GLUCOSE INCREASED [None]
